FAERS Safety Report 4399721-9 (Version None)
Quarter: 2004Q2

REPORT INFORMATION
  Report Type: 
  Country: None (occurrence: None)
  Receive Date: 20040608
  Receipt Date: 20040423
  Transmission Date: 20050107
  Serious: No
  Sender: FDA-Public Use
  Company Number: FROV000192

PATIENT
  Age: 17 Year
  Sex: Female

DRUGS (3)
  1. FROVA [Suspect]
     Indication: MIGRAINE
     Dosage: 5 MG; ORAL
     Route: 048
     Dates: start: 20040423
  2. PROMETHAZINE [Concomitant]
  3. BUTALBITAL, ASPIRIN + CAFFEINE [Concomitant]

REACTIONS (3)
  - DIZZINESS [None]
  - MIGRAINE [None]
  - NAUSEA [None]
